FAERS Safety Report 5031128-3 (Version None)
Quarter: 2006Q2

REPORT INFORMATION
  Report Type: 
  Country: None (occurrence: None)
  Receive Date: 20060619
  Receipt Date: 20060619
  Transmission Date: 20061013
  Serious: Yes (Life-Threatening, Hospitalization)
  Sender: FDA-Public Use
  Company Number: None

PATIENT
  Sex: Female
  Weight: 92.5338 kg

DRUGS (3)
  1. ORENCIA [Suspect]
     Indication: RHEUMATOID ARTHRITIS
     Dosage: 750 MG ONE DOSE IV DRIP
     Route: 041
     Dates: start: 20060517, end: 20060517
  2. ALEVE (CAPLET) [Concomitant]
  3. CALCIUM GLUCONATE [Concomitant]

REACTIONS (4)
  - CONGESTIVE CARDIOMYOPATHY [None]
  - COUGH [None]
  - DYSPNOEA [None]
  - RESPIRATORY DISORDER [None]
